FAERS Safety Report 20053110 (Version 1)
Quarter: 2021Q4

REPORT INFORMATION
  Report Type: Spontaneous
  Country: US (occurrence: None)
  Receive Date: 20211109
  Receipt Date: 20211109
  Transmission Date: 20220304
  Serious: Yes (Other)
  Sender: FDA-Public Use
  Company Number: None

PATIENT
  Age: 25 Year
  Sex: Male
  Weight: 54 kg

DRUGS (10)
  1. DIVALPROEX SODIUM [Suspect]
     Active Substance: DIVALPROEX SODIUM
     Indication: Epilepsy
     Dosage: OTHER QUANTITY : 2 TABLET(S);?FREQUENCY : AT BEDTIME;?
     Route: 048
  2. DEPAKOTE (DIVALPROEX) [Concomitant]
  3. LAMICTAL (LAMOTIGINE) [Concomitant]
  4. MULTI-VITAMIN [Concomitant]
     Active Substance: .ALPHA.-TOCOPHEROL ACETATE, DL-\ASCORBIC ACID\CYANOCOBALAMIN\FLUORIDE ION\FOLIC ACID\NIACIN\PYRIDOXI
  5. OMEGA 3 [Concomitant]
     Active Substance: CAPSAICIN
  6. CALCIUM [Concomitant]
  7. VITAMIN C [Concomitant]
     Active Substance: ASCORBIC ACID
  8. LEVOCARNITINE [Concomitant]
     Active Substance: LEVOCARNITINE
  9. COENZYME Q10 [Concomitant]
     Active Substance: DIETARY SUPPLEMENT\UBIDECARENONE
  10. VITAMIN B2 [Concomitant]
     Active Substance: RIBOFLAVIN

REACTIONS (2)
  - Product packaging issue [None]
  - Product dispensing error [None]

NARRATIVE: CASE EVENT DATE: 20211101
